FAERS Safety Report 7109491-9 (Version None)
Quarter: 2010Q4

REPORT INFORMATION
  Report Type: 
  Country: None (occurrence: None)
  Receive Date: 20101118
  Receipt Date: 20101109
  Transmission Date: 20110411
  Serious: No
  Sender: FDA-Public Use
  Company Number: US-BIOGENIDEC-2010BI039747

PATIENT
  Age: 59 Year
  Sex: Female

DRUGS (2)
  1. TYSABRI [Suspect]
     Indication: MULTIPLE SCLEROSIS
     Route: 042
     Dates: start: 20101105
  2. AVONEX [Concomitant]
     Indication: MULTIPLE SCLEROSIS
     Route: 030
     Dates: start: 20090201

REACTIONS (8)
  - BALANCE DISORDER [None]
  - DEPRESSION [None]
  - DRUG INEFFECTIVE [None]
  - GENERAL SYMPTOM [None]
  - LIMB DISCOMFORT [None]
  - LOSS OF CONTROL OF LEGS [None]
  - MUSCULOSKELETAL DISCOMFORT [None]
  - PAIN IN EXTREMITY [None]
